FAERS Safety Report 5806685-7 (Version None)
Quarter: 2008Q3

REPORT INFORMATION
  Report Type: 
  Country: None (occurrence: None)
  Receive Date: 20080710
  Receipt Date: 20080708
  Transmission Date: 20090109
  Serious: Yes (Hospitalization, Other)
  Sender: FDA-Public Use
  Company Number: US-AMGEN-QUU280810

PATIENT
  Sex: Female

DRUGS (6)
  1. ENBREL [Suspect]
     Indication: RHEUMATOID ARTHRITIS
     Route: 058
     Dates: start: 19991201
  2. ARAVA [Concomitant]
     Route: 048
     Dates: start: 20030101
  3. PLAQUENIL [Concomitant]
  4. PREDNISOLONE [Concomitant]
  5. FELDENE [Concomitant]
  6. NEXIUM [Concomitant]

REACTIONS (9)
  - ARTHRALGIA [None]
  - EYE INFECTION [None]
  - INJECTION SITE PAIN [None]
  - OSTEOARTHRITIS [None]
  - POSTOPERATIVE WOUND COMPLICATION [None]
  - RETINAL DISORDER [None]
  - STAPHYLOCOCCAL INFECTION [None]
  - TENDON RUPTURE [None]
  - WRIST SURGERY [None]
